FAERS Safety Report 15291075 (Version 6)
Quarter: 2021Q1

REPORT INFORMATION
  Report Type: Spontaneous
  Country: US (occurrence: US)
  Receive Date: 20180817
  Receipt Date: 20210319
  Transmission Date: 20210419
  Serious: Yes (Other)
  Sender: FDA-Public Use
  Company Number: US-PFIZER INC-2018332688

PATIENT
  Age: 33 Year
  Sex: Male
  Weight: 70.31 kg

DRUGS (2)
  1. RAPAMUNE [Suspect]
     Active Substance: SIROLIMUS
     Indication: PROPHYLAXIS AGAINST TRANSPLANT REJECTION
     Dosage: 1 MG, 1X/DAY
     Route: 048
     Dates: start: 2003
  2. RAPAMUNE [Suspect]
     Active Substance: SIROLIMUS
     Indication: RENAL TRANSPLANT FAILURE
     Dosage: 3 MG, DAILY (TAKE 3 TABLETS (3MG TOTAL) BY MOUTH 1 (ONE) TIME EACH DAY)
     Route: 048

REACTIONS (6)
  - Blood pressure increased [Not Recovered/Not Resolved]
  - Stress [Unknown]
  - Renal failure [Unknown]
  - Blood creatine increased [Unknown]
  - Organ failure [Not Recovered/Not Resolved]
  - Nausea [Not Recovered/Not Resolved]
